FAERS Safety Report 24317987 (Version 1)
Quarter: 2024Q3

REPORT INFORMATION
  Report Type: Spontaneous
  Country: US (occurrence: US)
  Receive Date: 20240913
  Receipt Date: 20240913
  Transmission Date: 20241017
  Serious: No
  Sender: BIOVITRUM
  Company Number: US-BIOVITRUM-2024-US-011943

PATIENT
  Age: 63 Year
  Sex: Male

DRUGS (1)
  1. VONJO [Suspect]
     Active Substance: PACRITINIB
     Indication: Myelodysplastic syndrome
     Dosage: 200 MG, TWICE DAILY
     Route: 048
     Dates: start: 20230216

REACTIONS (1)
  - Diarrhoea [Unknown]
